FAERS Safety Report 5052516-5 (Version None)
Quarter: 2006Q3

REPORT INFORMATION
  Report Type: 
  Country: None (occurrence: None)
  Receive Date: 20060717
  Receipt Date: 20060404
  Transmission Date: 20061208
  Serious: Yes (Other)
  Sender: FDA-Public Use
  Company Number: JP-AVENTIS-200611117JP

PATIENT
  Age: 26 Year
  Sex: Female
  Weight: 59.3 kg

DRUGS (7)
  1. LANTUS [Suspect]
     Indication: DIABETES MELLITUS INSULIN-DEPENDENT
     Dosage: DOSE UNIT: UNITS
     Route: 058
     Dates: end: 20060403
  2. LANTUS [Suspect]
     Dosage: DOSE UNIT: UNITS
     Route: 058
     Dates: start: 20060403
  3. LANTUS [Suspect]
     Dosage: DOSE UNIT: UNITS
     Route: 058
     Dates: end: 20060601
  4. OPTICLIK (INSULIN INJECTION PEN) [Suspect]
  5. NU-LOTAN [Concomitant]
     Indication: DIABETIC NEPHROPATHY
     Route: 048
  6. NOVORAPID [Concomitant]
     Dosage: DOSE: 8-8-9-0; DOSE UNIT: UNITS
     Route: 058
     Dates: end: 20060403
  7. NOVORAPID [Concomitant]
     Dosage: DOSE: 6-0-8-0; DOSE UNIT: UNITS
     Route: 058
     Dates: start: 20060403

REACTIONS (3)
  - DYSARTHRIA [None]
  - HYPOGLYCAEMIA [None]
  - SUDDEN HEARING LOSS [None]
